FAERS Safety Report 8437865-2 (Version None)
Quarter: 2012Q2

REPORT INFORMATION
  Report Type: 
  Country: None (occurrence: None)
  Receive Date: 20120614
  Receipt Date: 20120521
  Transmission Date: 20120825
  Serious: No
  Sender: FDA-Public Use
  Company Number: US-AMGEN-USASP2012032244

PATIENT
  Age: 51 Year
  Sex: Female

DRUGS (5)
  1. LYRICA [Concomitant]
  2. CYMBALTA [Concomitant]
  3. RELPAX [Concomitant]
  4. PROLIA [Suspect]
     Indication: OSTEOPOROSIS POSTMENOPAUSAL
     Dosage: UNK UNK, Q6MO
     Dates: start: 20120517
  5. AMBIEN [Concomitant]

REACTIONS (3)
  - BEDRIDDEN [None]
  - MUSCULOSKELETAL STIFFNESS [None]
  - INFLUENZA LIKE ILLNESS [None]
